FAERS Safety Report 6695423-4 (Version None)
Quarter: 2010Q2

REPORT INFORMATION
  Report Type: 
  Country: None (occurrence: None)
  Receive Date: 20100422
  Receipt Date: 20100422
  Transmission Date: 20101027
  Serious: Yes (Other)
  Sender: FDA-Public Use
  Company Number: None

PATIENT
  Sex: Female
  Weight: 92.9874 kg

DRUGS (1)
  1. SIMVASTATIN [Suspect]
     Indication: BLOOD CHOLESTEROL ABNORMAL
     Dosage: 1 TABLET EVERY EVENING BY MOUTH
     Route: 048
     Dates: start: 20080101, end: 20091221

REACTIONS (8)
  - ALOPECIA [None]
  - CHROMATURIA [None]
  - DRY SKIN [None]
  - EYE PRURITUS [None]
  - HAIR COLOUR CHANGES [None]
  - OCULAR HYPERAEMIA [None]
  - PRURITUS GENERALISED [None]
  - VISION BLURRED [None]
